FAERS Safety Report 25660044 (Version 1)
Quarter: 2025Q3

REPORT INFORMATION
  Report Type: Spontaneous
  Country: US (occurrence: None)
  Receive Date: 20250807
  Receipt Date: 20250807
  Transmission Date: 20251020
  Serious: Yes (Other)
  Sender: FDA-CTU
  Company Number: None

PATIENT
  Age: 78 Year
  Sex: Female
  Weight: 72.7 kg

DRUGS (1)
  1. KISUNLA [Suspect]
     Active Substance: DONANEMAB-AZBT
     Indication: Dementia Alzheimer^s type
     Route: 042
     Dates: start: 20250708, end: 20250805

REACTIONS (8)
  - Infusion related reaction [None]
  - Feeling hot [None]
  - Dyspnoea [None]
  - Flushing [None]
  - Hyperhidrosis [None]
  - Blood pressure systolic increased [None]
  - Chills [None]
  - Tremor [None]

NARRATIVE: CASE EVENT DATE: 20250805
